FAERS Safety Report 8113434-9 (Version None)
Quarter: 2012Q1

REPORT INFORMATION
  Report Type: 
  Country: None (occurrence: None)
  Receive Date: 20120203
  Receipt Date: 20120202
  Transmission Date: 20120608
  Serious: Yes (Hospitalization)
  Sender: FDA-Public Use
  Company Number: PHHY2012CN008674

PATIENT
  Age: 84 Year
  Sex: Female

DRUGS (1)
  1. ZOLEDRONOC ACID [Suspect]
     Indication: OSTEOPOROSIS POSTMENOPAUSAL
     Dosage: 5MG/100ML , YEARLY
     Route: 042
     Dates: start: 20120131

REACTIONS (2)
  - VOMITING [None]
  - COMA [None]
